FAERS Safety Report 13482612 (Version 3)
Quarter: 2018Q1

REPORT INFORMATION
  Report Type: Spontaneous
  Country: US (occurrence: US)
  Receive Date: 20170424
  Receipt Date: 20180123
  Transmission Date: 20180508
  Serious: No
  Sender: FDA-Public Use
  Company Number: US-AMGEN-USASP2017055508

PATIENT
  Age: 66 Year
  Sex: Female

DRUGS (2)
  1. IBUPROFEN. [Concomitant]
     Active Substance: IBUPROFEN
     Dosage: UNK
  2. REPATHA [Suspect]
     Active Substance: EVOLOCUMAB
     Indication: PRODUCT USED FOR UNKNOWN INDICATION
     Dosage: UNK
     Route: 065
     Dates: start: 201703

REACTIONS (8)
  - Myalgia [Unknown]
  - Rhinorrhoea [Unknown]
  - Vulvovaginal mycotic infection [Unknown]
  - Influenza like illness [Unknown]
  - Musculoskeletal discomfort [Unknown]
  - Dysphonia [Unknown]
  - Arthralgia [Unknown]
  - Abdominal discomfort [Unknown]
